FAERS Safety Report 6106578-4 (Version None)
Quarter: 2009Q1

REPORT INFORMATION
  Report Type: 
  Country: None (occurrence: None)
  Receive Date: 20090304
  Receipt Date: 20090220
  Transmission Date: 20090719
  Serious: Yes (Life-Threatening)
  Sender: FDA-Public Use
  Company Number: 2007-00957

PATIENT
  Age: 69 Year
  Sex: Female
  Weight: 47 kg

DRUGS (13)
  1. VELCADE [Suspect]
     Indication: MULTIPLE MYELOMA
     Dosage: 1.7 MG UNK UNK; 1.3 MG UNK INTRAVENOUS; 1.7 MG UNK INTRAVENOUS; 1.5 MG UNK INTRAVENOUS
     Route: 042
     Dates: start: 20070116, end: 20070123
  2. VELCADE [Suspect]
     Indication: MULTIPLE MYELOMA
     Dosage: 1.7 MG UNK UNK; 1.3 MG UNK INTRAVENOUS; 1.7 MG UNK INTRAVENOUS; 1.5 MG UNK INTRAVENOUS
     Route: 042
     Dates: start: 20070126, end: 20070126
  3. VELCADE [Suspect]
     Indication: MULTIPLE MYELOMA
     Dosage: 1.7 MG UNK UNK; 1.3 MG UNK INTRAVENOUS; 1.7 MG UNK INTRAVENOUS; 1.5 MG UNK INTRAVENOUS
     Route: 042
     Dates: start: 20070206, end: 20070216
  4. VELCADE [Suspect]
     Indication: MULTIPLE MYELOMA
     Dosage: 1.7 MG UNK UNK; 1.3 MG UNK INTRAVENOUS; 1.7 MG UNK INTRAVENOUS; 1.5 MG UNK INTRAVENOUS
     Route: 042
     Dates: start: 20070525, end: 20080303
  5. ZOMETA [Suspect]
     Indication: DRUG USE FOR UNKNOWN INDICATION
     Dosage: 4 MG UNK INTRAVENOUS
     Route: 042
     Dates: start: 20070820
  6. PIPERACILLIN SODIUM [Concomitant]
  7. FAMOTIDINE [Concomitant]
  8. MAGNESIUM OXIDE (MAGNESIUM OXIDE) [Concomitant]
  9. ADALAT CC [Concomitant]
  10. ISOSORBIDE MONONITRATE [Concomitant]
  11. SIMVASTATIN [Concomitant]
  12. MOBIC [Concomitant]
  13. SULFAMETHOXAZOLE AND TRIMETHOPRIM [Concomitant]

REACTIONS (11)
  - ANOREXIA [None]
  - ASPARTATE AMINOTRANSFERASE INCREASED [None]
  - BONE PAIN [None]
  - FAECAL INCONTINENCE [None]
  - HERPES ZOSTER [None]
  - LEUKOPENIA [None]
  - MALAISE [None]
  - OEDEMA PERIPHERAL [None]
  - PAIN [None]
  - THROMBOCYTOPENIA [None]
  - URINARY INCONTINENCE [None]
